FAERS Safety Report 21515318 (Version 1)
Quarter: 2022Q4

REPORT INFORMATION
  Report Type: Spontaneous
  Country: US (occurrence: None)
  Receive Date: 20221027
  Receipt Date: 20221027
  Transmission Date: 20230112
  Serious: Yes (Life-Threatening)
  Sender: FDA-Public Use
  Company Number: None

PATIENT
  Age: 53 Year
  Sex: Male
  Weight: 118 kg

DRUGS (1)
  1. ELIQUIS [Suspect]
     Active Substance: APIXABAN

REACTIONS (4)
  - Treatment failure [None]
  - Condition aggravated [None]
  - Peripheral swelling [None]
  - Deep vein thrombosis [None]

NARRATIVE: CASE EVENT DATE: 20221024
